FAERS Safety Report 24614718 (Version 1)
Quarter: 2024Q4

REPORT INFORMATION
  Report Type: Report from Study
  Country: IT (occurrence: IT)
  Receive Date: 20241113
  Receipt Date: 20241113
  Transmission Date: 20250115
  Serious: Yes (Hospitalization)
  Sender: PFIZER
  Company Number: None

PATIENT
  Age: 30 Year
  Sex: Female
  Weight: 64 kg

DRUGS (12)
  1. BRENTUXIMAB VEDOTIN [Suspect]
     Active Substance: BRENTUXIMAB VEDOTIN
     Indication: Hodgkin^s disease
     Dosage: 73.00 MILLIGRAMS/MILLILITER
     Route: 042
     Dates: start: 20240602, end: 20240802
  2. DOXORUBICIN HYDROCHLORIDE [Concomitant]
     Active Substance: DOXORUBICIN HYDROCHLORIDE
     Indication: Hodgkin^s disease
     Dosage: 38.00 MILLIGRAM/MILLILITRE
     Route: 042
     Dates: start: 20240602, end: 20240802
  3. DACARBAZINE [Concomitant]
     Active Substance: DACARBAZINE
     Indication: Hodgkin^s disease
     Dosage: 570.00 MILLIGRAM/MILLILITRE
     Route: 042
     Dates: start: 20240602, end: 20240802
  4. VINBLASTINE SULFATE [Concomitant]
     Active Substance: VINBLASTINE SULFATE
     Indication: Hodgkin^s disease
     Dosage: 9.50 MILLIGRAM/ 9.50 MILLILITRE
     Route: 042
     Dates: start: 20240602, end: 20240802
  5. GRANISETRON [Concomitant]
     Active Substance: GRANISETRON
     Indication: Prophylaxis of nausea and vomiting
     Dosage: 3.00 MG/100 ML
     Route: 042
  6. DEXAMETHASONE SODIUM PHOSPHATE [Concomitant]
     Active Substance: DEXAMETHASONE SODIUM PHOSPHATE
     Indication: Allergy prophylaxis
     Dosage: 4.00 MILLIGRAM / 100 MILLILITRE
     Route: 042
  7. OMEPRAZOLE [Concomitant]
     Active Substance: OMEPRAZOLE
     Indication: Gastritis prophylaxis
     Dosage: 40.00 MILLIGRAM/100 MILLILITRE
     Route: 042
  8. AKYNZEO (NETUPITANT\PALONOSETRON HYDROCHLORIDE) [Concomitant]
     Active Substance: NETUPITANT\PALONOSETRON HYDROCHLORIDE
     Indication: Prophylaxis of nausea and vomiting
     Dosage: 300 MILLIGRAM
     Route: 048
  9. CHLORPHENIRAMINE MALEATE [Concomitant]
     Active Substance: CHLORPHENIRAMINE MALEATE
     Indication: Allergy prophylaxis
     Dosage: 5.00 MILLIGRAM /100 MILLILITRE
     Route: 042
  10. HERBALS\SILYBUM MARIANUM WHOLE [Concomitant]
     Active Substance: HERBALS\SILYBUM MARIANUM WHOLE
     Indication: Dyspepsia
     Dosage: 200 MILLIGRAM, BID
     Route: 048
  11. BACTRIM [Concomitant]
     Active Substance: SULFAMETHOXAZOLE\TRIMETHOPRIM
     Indication: Antibiotic prophylaxis
     Dosage: 160 MG + 800 MG 1 TABLET 2 TIMES A DAY 3 TIMES A WEEK
     Route: 048
  12. FEBUXOSTAT [Concomitant]
     Active Substance: FEBUXOSTAT
     Indication: Hyperuricaemia
     Dosage: 8 MILLIGRAM, 1/WEEK
     Route: 048

REACTIONS (1)
  - Neurotoxicity [Recovering/Resolving]

NARRATIVE: CASE EVENT DATE: 20240822
